FAERS Safety Report 5126859-0 (Version None)
Quarter: 2006Q4

REPORT INFORMATION
  Report Type: 
  Country: None (occurrence: None)
  Receive Date: 20061013
  Receipt Date: 20061005
  Transmission Date: 20070319
  Serious: Yes (Life-Threatening)
  Sender: FDA-Public Use
  Company Number: FR-ROCHE-466357

PATIENT
  Age: 55 Year
  Sex: Female
  Weight: 50 kg

DRUGS (6)
  1. KYTRIL [Suspect]
     Indication: DRUG USE FOR UNKNOWN INDICATION
     Dosage: DOSE REPORTED AS ^3MG AT TOTAL^
     Route: 042
     Dates: start: 20060802, end: 20060802
  2. SOLU-MEDROL [Suspect]
     Indication: DRUG USE FOR UNKNOWN INDICATION
     Dosage: DOSE REPORTED AS ^2 DOSES AT TOTAL^.  DRUG NAME REPORTED AS ^SOLUMEDROL 40MG/2ML^.
     Route: 042
     Dates: start: 20060802, end: 20060802
  3. EMEND [Suspect]
     Indication: DRUG USE FOR UNKNOWN INDICATION
     Dosage: DOSE REPORTED AS ^125MG AT TOTAL^
     Route: 048
     Dates: start: 20060802, end: 20060802
  4. GEMZAR [Suspect]
     Indication: DRUG USE FOR UNKNOWN INDICATION
     Dosage: DOSE REPORTED AS ^1.6G AT TOTAL^
     Route: 042
     Dates: start: 20060802, end: 20060802
  5. CISPLATIN [Suspect]
     Indication: DRUG USE FOR UNKNOWN INDICATION
     Dosage: DOSE REPORTED AS ^110MG AT TOTAL^
     Route: 042
     Dates: start: 20060802, end: 20060802
  6. MANNITOL [Suspect]
     Indication: DRUG USE FOR UNKNOWN INDICATION
     Dosage: DOSE REPORTED AS ^500ML AT TOTAL^
     Route: 042
     Dates: start: 20060802, end: 20060802

REACTIONS (6)
  - BLOOD PRESSURE SYSTOLIC DECREASED [None]
  - CREPITATIONS [None]
  - CYANOSIS [None]
  - PULMONARY OEDEMA [None]
  - RESPIRATORY DISTRESS [None]
  - TACHYCARDIA [None]
